FAERS Safety Report 20521358 (Version 1)
Quarter: 2022Q1

REPORT INFORMATION
  Report Type: Spontaneous
  Country: CN (occurrence: CN)
  Receive Date: 20220226
  Receipt Date: 20220226
  Transmission Date: 20220423
  Serious: Yes (Life-Threatening, Other)
  Sender: FDA-Public Use
  Company Number: CN-JNJFOC-20220246631

PATIENT
  Age: 46 Year
  Sex: Female
  Weight: 56 kg

DRUGS (5)
  1. VELCADE [Suspect]
     Active Substance: BORTEZOMIB
     Indication: Plasma cell myeloma
     Dosage: 2 MILLIGRAM
     Route: 058
     Dates: start: 20220204, end: 20220204
  2. DARZALEX [Suspect]
     Active Substance: DARATUMUMAB
     Indication: Plasma cell myeloma
     Dosage: 800 MILLIGRAM, QD
     Route: 058
     Dates: start: 20220204, end: 20220204
  3. ETOPOSIDE [Suspect]
     Active Substance: ETOPOSIDE
     Indication: Plasma cell myeloma
     Dosage: 0.15 GRAM
     Route: 041
     Dates: start: 20220205, end: 20220206
  4. CYCLOPHOSPHAMIDE [Suspect]
     Active Substance: CYCLOPHOSPHAMIDE
     Indication: Plasma cell myeloma
     Dosage: 1 GRAM
     Route: 041
     Dates: start: 20220205, end: 20220206
  5. DEXAMETHASONE SODIUM PHOSPHATE [Concomitant]
     Active Substance: DEXAMETHASONE SODIUM PHOSPHATE
     Indication: Plasma cell myeloma
     Dosage: 40 MILLIGRAM, QD
     Route: 042

REACTIONS (1)
  - Myelosuppression [Recovering/Resolving]

NARRATIVE: CASE EVENT DATE: 20220213
